FAERS Safety Report 9715227 (Version 1)
Quarter: 2013Q4

REPORT INFORMATION
  Report Type: Report from Study
  Country: US (occurrence: US)
  Receive Date: 20131126
  Receipt Date: 20131126
  Transmission Date: 20140711
  Serious: Yes (Other)
  Sender: FDA-Public Use
  Company Number: US-ROCHE-1304640

PATIENT
  Age: 55 Year
  Sex: Female
  Weight: 78 kg

DRUGS (2)
  1. BEVACIZUMAB [Suspect]
     Indication: OVARIAN EPITHELIAL CANCER
     Dosage: BEVACIZUMAB: 15 MG/KG IV OVER 30-90 MINUTES ON DAY 1,?CYCLE = 21 DAYS,?TOTAL DOSE ADMINISTERED : 117
     Route: 042
     Dates: start: 20121102, end: 20130912
  2. CISPLATIN [Suspect]
     Indication: OVARIAN EPITHELIAL CANCER
     Route: 065

REACTIONS (1)
  - Hypomagnesaemia [Recovered/Resolved]
